FAERS Safety Report 17663282 (Version 2)
Quarter: 2021Q1

REPORT INFORMATION
  Report Type: Spontaneous
  Country: FR (occurrence: FR)
  Receive Date: 20200413
  Receipt Date: 20210211
  Transmission Date: 20210419
  Serious: Yes (Other)
  Sender: FDA-Public Use
  Company Number: FR-ADVANZ PHARMA-202004002844

PATIENT

DRUGS (4)
  1. HYDROXYCHLOROQUINE [Suspect]
     Active Substance: HYDROXYCHLOROQUINE
     Indication: POLYARTHRITIS
     Dosage: 1 DOSAGE FORM, QD (PLAQUENIL, 1CP/DAY FOR 15)
     Route: 065
  2. CARDENSIEL [Concomitant]
     Active Substance: BISOPROLOL FUMARATE
     Dosage: UNK
  3. HYDROXYCHLOROQUINE [Suspect]
     Active Substance: HYDROXYCHLOROQUINE
     Indication: RHEUMATOID ARTHRITIS
  4. HYDROXYCHLOROQUINE [Suspect]
     Active Substance: HYDROXYCHLOROQUINE
     Indication: ARTHRITIS
     Dosage: 200 MG, BID (PLAQUENIL, 2CP/DAY,)
     Route: 048
     Dates: start: 1984

REACTIONS (17)
  - Femur fracture [Unknown]
  - Fall [Unknown]
  - Product dose omission issue [Unknown]
  - Vision blurred [Unknown]
  - Pain [Unknown]
  - Intentional product use issue [Unknown]
  - Arthralgia [Unknown]
  - Peripheral swelling [Unknown]
  - Headache [Unknown]
  - Visual impairment [Unknown]
  - Hypoacusis [Unknown]
  - Unevaluable event [Unknown]
  - Rash [Unknown]
  - Cardiac disorder [Unknown]
  - Ligament sprain [Unknown]
  - Metamorphopsia [Unknown]
  - Strabismus [Unknown]
